FAERS Safety Report 11442916 (Version 1)
Quarter: 2015Q3

REPORT INFORMATION
  Report Type: Spontaneous
  Country: FR (occurrence: FR)
  Receive Date: 20150901
  Receipt Date: 20150901
  Transmission Date: 20151125
  Serious: Yes (Hospitalization, Other)
  Sender: FDA-Public Use
  Company Number: FR-ASTRAZENECA-2015SE82141

PATIENT
  Age: 30183 Day
  Sex: Female

DRUGS (9)
  1. TRIVASTAL [Concomitant]
     Active Substance: PIRIBEDIL
  2. MODOPAR [Concomitant]
     Active Substance: BENSERAZIDE HYDROCHLORIDE\LEVODOPA
  3. XARELTO [Concomitant]
     Active Substance: RIVAROXABAN
  4. HEMIGOXINE [Concomitant]
     Active Substance: DIGOXIN
  5. EXFORGE [Concomitant]
     Active Substance: AMLODIPINE BESYLATE\VALSARTAN
  6. CRESTOR [Concomitant]
     Active Substance: ROSUVASTATIN CALCIUM
  7. DAFALGAN [Concomitant]
     Active Substance: ACETAMINOPHEN
  8. SYMBICORT [Suspect]
     Active Substance: BUDESONIDE\FORMOTEROL FUMARATE DIHYDRATE
     Indication: ASTHMA
     Dosage: 320/9 UG, PER DOSE FOR ASTHMA FROM SEVERAL YEARS.
     Route: 055
  9. STAGID [Concomitant]
     Active Substance: METFORMIN PAMOATE

REACTIONS (3)
  - Microcytic anaemia [Unknown]
  - Gastric ulcer [Recovering/Resolving]
  - Duodenal ulcer [Recovering/Resolving]

NARRATIVE: CASE EVENT DATE: 20150701
